FAERS Safety Report 23955978 (Version 2)
Quarter: 2024Q4

REPORT INFORMATION
  Report Type: Report from Study
  Country: US (occurrence: US)
  Receive Date: 20240610
  Receipt Date: 20241220
  Transmission Date: 20250114
  Serious: Yes (Other)
  Sender: GILEAD
  Company Number: US-GILEAD-2024-0676049

PATIENT
  Age: 44 Year
  Sex: Female

DRUGS (2)
  1. AMBRISENTAN [Suspect]
     Active Substance: AMBRISENTAN
     Indication: Pulmonary arterial hypertension
     Dosage: 10 MG, QD
     Route: 065
     Dates: start: 202211
  2. UPTRAVI [Suspect]
     Active Substance: SELEXIPAG
     Indication: Pulmonary arterial hypertension
     Dosage: 1600 UG, BID
     Route: 065
     Dates: start: 202211

REACTIONS (5)
  - Syncope [Recovered/Resolved]
  - Chest pain [Unknown]
  - General physical health deterioration [Unknown]
  - Fatigue [Unknown]
  - Dizziness [Unknown]
